FAERS Safety Report 6557413-1 (Version None)
Quarter: 2010Q1

REPORT INFORMATION
  Report Type: 
  Country: None (occurrence: None)
  Receive Date: 20100129
  Receipt Date: 20100117
  Transmission Date: 20100710
  Serious: Yes (Other)
  Sender: FDA-Public Use
  Company Number: US-JNJFOC-20100110811

PATIENT
  Sex: Female

DRUGS (7)
  1. TYLENOL-500 [Suspect]
     Route: 048
  2. TYLENOL-500 [Suspect]
     Indication: DRUG USE FOR UNKNOWN INDICATION
     Route: 048
  3. INHALERS [Concomitant]
     Route: 055
  4. UNSPECIFIED NEBULIZER [Concomitant]
     Route: 055
  5. PEPCID [Concomitant]
     Route: 048
  6. ASPIRIN [Concomitant]
     Route: 048
  7. ADVIL [Concomitant]
     Route: 048

REACTIONS (2)
  - ASTHMA [None]
  - PRODUCT QUALITY ISSUE [None]
